FAERS Safety Report 16142442 (Version 1)
Quarter: 2019Q1

REPORT INFORMATION
  Report Type: Spontaneous
  Country: US (occurrence: US)
  Receive Date: 20190226
  Receipt Date: 20190226
  Transmission Date: 20190418
  Serious: Yes (Disabling)
  Sender: FDA-Public Use
  Company Number: None

PATIENT
  Age: 86 Year
  Sex: Male
  Weight: 83.91 kg

DRUGS (6)
  1. FISH OIL [Concomitant]
     Active Substance: FISH OIL
  2. VITAMIN B12 [Concomitant]
     Active Substance: CYANOCOBALAMIN
  3. SENIOR MULTIVITAMINS [Concomitant]
     Active Substance: VITAMINS
  4. PANTOPRAZOLE SODIUM DELAYED RELEASE TABLETS 40MG [Suspect]
     Active Substance: PANTOPRAZOLE SODIUM
     Indication: PULMONARY FIBROSIS
     Dosage: ?          QUANTITY:40 MG MILLIGRAM(S);?
     Route: 048
     Dates: start: 20190104, end: 20190212
  5. XARELTO [Concomitant]
     Active Substance: RIVAROXABAN
  6. MELOXICAM. [Concomitant]
     Active Substance: MELOXICAM

REACTIONS (1)
  - Vision blurred [None]

NARRATIVE: CASE EVENT DATE: 20190202
